FAERS Safety Report 10503115 (Version 1)
Quarter: 2014Q4

REPORT INFORMATION
  Report Type: Spontaneous
  Country: FR (occurrence: FR)
  Receive Date: 20141007
  Receipt Date: 20141007
  Transmission Date: 20150528
  Serious: Yes (Hospitalization)
  Sender: FDA-Public Use
  Company Number: FR-ASTRAZENECA-2014SE74410

PATIENT
  Age: 1020 Month
  Sex: Female

DRUGS (7)
  1. INEXIUM [Suspect]
     Active Substance: ESOMEPRAZOLE
     Route: 048
     Dates: end: 20140910
  2. DIGOXINE [Concomitant]
     Active Substance: DIGOXIN
  3. SPIRONOLACTONE BIOGARAN [Suspect]
     Active Substance: SPIRONOLACTONE
     Route: 048
     Dates: end: 20140910
  4. PRETERAX [Concomitant]
     Active Substance: INDAPAMIDE\PERINDOPRIL
  5. BUSPAR [Suspect]
     Active Substance: BUSPIRONE HYDROCHLORIDE
     Route: 048
     Dates: start: 20140830, end: 20140910
  6. CARDENSIEL [Concomitant]
     Active Substance: BISOPROLOL FUMARATE
  7. CYMBALTA [Suspect]
     Active Substance: DULOXETINE HYDROCHLORIDE
     Route: 065
     Dates: start: 20140830, end: 20140910

REACTIONS (7)
  - Fall [Recovered/Resolved]
  - Dehydration [None]
  - Decreased appetite [None]
  - Blood pressure systolic increased [None]
  - Hyponatraemia [Recovered/Resolved]
  - General physical health deterioration [Recovered/Resolved]
  - Abdominal pain [None]

NARRATIVE: CASE EVENT DATE: 201409
